FAERS Safety Report 10502700 (Version 1)
Quarter: 2014Q4

REPORT INFORMATION
  Report Type: Spontaneous
  Country: US (occurrence: None)
  Receive Date: 20141003
  Receipt Date: 20141003
  Transmission Date: 20150528
  Serious: Yes (Life-Threatening, Hospitalization, Other)
  Sender: FDA-Public Use
  Company Number: ADR-2014-01633

PATIENT
  Sex: Female

DRUGS (18)
  1. SENNOSIDES. [Suspect]
     Active Substance: SENNOSIDES
  2. ROXICODONE [Suspect]
     Active Substance: OXYCODONE HYDROCHLORIDE
  3. COUMADIN [Suspect]
     Active Substance: WARFARIN SODIUM
  4. PAMELOR [Suspect]
     Active Substance: NORTRIPTYLINE HYDROCHLORIDE
  5. CALCIUM CARBONATE. [Suspect]
     Active Substance: CALCIUM CARBONATE
  6. NEURONTIN [Suspect]
     Active Substance: GABAPENTIN
  7. LOVENOX [Suspect]
     Active Substance: ENOXAPARIN SODIUM
  8. VANCOMYCIN [Suspect]
     Active Substance: VANCOMYCIN
  9. ZYRTEC [Suspect]
     Active Substance: CETIRIZINE HYDROCHLORIDE
  10. LIORESAL [Suspect]
     Active Substance: BACLOFEN
     Indication: MUSCLE SPASTICITY
     Dosage: 399 MCG/DAY; SEE B5
  11. DEXTROSE. [Suspect]
     Active Substance: DEXTROSE
  12. PLAVIX [Suspect]
     Active Substance: CLOPIDOGREL BISULFATE
  13. ZOCOR [Suspect]
     Active Substance: SIMVASTATIN
  14. COLACE [Suspect]
     Active Substance: DOCUSATE SODIUM
  15. FOSAMAX [Suspect]
     Active Substance: ALENDRONATE SODIUM
  16. LIORESAL [Suspect]
     Active Substance: BACLOFEN
  17. VITAMIN D3 [Suspect]
     Active Substance: CHOLECALCIFEROL
  18. FERROUS SULFATE [Suspect]
     Active Substance: FERROUS SULFATE\FERROUS SULFATE, DRIED

REACTIONS (8)
  - Implant site infection [None]
  - Suture insertion [None]
  - Device breakage [None]
  - Muscle spasms [None]
  - Device leakage [None]
  - Implant site extravasation [None]
  - Scar [None]
  - Device related infection [None]
